FAERS Safety Report 8125592-0 (Version None)
Quarter: 2012Q1

REPORT INFORMATION
  Report Type: 
  Country: None (occurrence: None)
  Receive Date: 20120209
  Receipt Date: 20120208
  Transmission Date: 20120608
  Serious: Yes (Life-Threatening, Hospitalization, Other)
  Sender: FDA-Public Use
  Company Number: JP-PFIZER INC-2011307293

PATIENT
  Age: 80 Year
  Sex: Female

DRUGS (12)
  1. DIMETICONE [Concomitant]
     Dosage: UNK
     Route: 048
     Dates: start: 20090409
  2. EQUA [Concomitant]
     Dosage: 100 MG DAILY
     Route: 048
     Dates: start: 20100326
  3. PRORENAL [Concomitant]
     Dosage: 5 MG, 3X/DAY
     Route: 048
     Dates: start: 20110610
  4. EBIOS [Concomitant]
     Dosage: UNK
     Route: 048
     Dates: start: 20090409
  5. CELECOXIB [Concomitant]
     Dosage: 100 MG, 2X/DAY
     Route: 048
     Dates: start: 20110930
  6. LYRICA [Suspect]
     Indication: SPINAL COLUMN STENOSIS
     Dosage: UNK
     Route: 048
     Dates: start: 20111111, end: 20111214
  7. ALDIOXA [Concomitant]
     Dosage: UNK
     Route: 048
     Dates: start: 20110610
  8. CEFAZOLIN SODIUM [Concomitant]
     Dosage: UNK
     Route: 048
     Dates: start: 20090409
  9. LIPIDIL [Concomitant]
     Dosage: 67 MG/DAY
     Route: 048
     Dates: start: 20091228
  10. RETICOLAN [Concomitant]
     Dosage: UNK
     Route: 048
     Dates: start: 20110610
  11. LYRICA [Suspect]
     Indication: HYPOAESTHESIA
  12. GLUFAST [Concomitant]
     Dosage: 10 MG, 3X/DAY
     Route: 048
     Dates: start: 20091228, end: 20100324

REACTIONS (3)
  - JUGULAR VEIN DISTENSION [None]
  - ACUTE RESPIRATORY FAILURE [None]
  - FACE OEDEMA [None]
